FAERS Safety Report 17501642 (Version 2)
Quarter: 2020Q1

REPORT INFORMATION
  Report Type: Spontaneous
  Country: US (occurrence: US)
  Receive Date: 20200305
  Receipt Date: 20200309
  Transmission Date: 20200409
  Serious: No
  Sender: FDA-Public Use
  Company Number: US-PFIZER INC-2019422447

PATIENT
  Age: 37 Year
  Sex: Male
  Weight: 146.51 kg

DRUGS (4)
  1. CYMBALTA [Concomitant]
     Active Substance: DULOXETINE HYDROCHLORIDE
     Dosage: UNK
  2. LYRICA [Suspect]
     Active Substance: PREGABALIN
     Indication: NAUSEA
  3. LYRICA [Suspect]
     Active Substance: PREGABALIN
     Indication: NEUROPATHY PERIPHERAL
     Dosage: 100 MG, 2X/DAY(1 PO Q 12 HOURS (BID))
     Route: 048
  4. LYRICA [Suspect]
     Active Substance: PREGABALIN
     Indication: VOMITING

REACTIONS (5)
  - Off label use [Unknown]
  - Visual impairment [Unknown]
  - Product use in unapproved indication [Unknown]
  - Product dose omission [Unknown]
  - Memory impairment [Unknown]
